FAERS Safety Report 17534553 (Version 2)
Quarter: 2020Q1

REPORT INFORMATION
  Report Type: Spontaneous
  Country: KR (occurrence: KR)
  Receive Date: 20200312
  Receipt Date: 20200321
  Transmission Date: 20200409
  Serious: Yes (Hospitalization, Other)
  Sender: FDA-Public Use
  Company Number: KR-JNJFOC-20200244142

PATIENT
  Age: 24 Year
  Sex: Female

DRUGS (1)
  1. PARACETAMOL [Suspect]
     Active Substance: ACETAMINOPHEN
     Indication: PRODUCT USED FOR UNKNOWN INDICATION
     Dosage: APPROXIMATELY 8000 MG; IN TOTAL, ADDITIONAL INFO: OVERDOSE-ACETAMINOPHEN,PARACETAMOL:153.8 MG/KG IN
     Route: 048

REACTIONS (7)
  - Procalcitonin increased [Recovering/Resolving]
  - Overdose [Recovering/Resolving]
  - Nausea [Recovering/Resolving]
  - Abdominal pain upper [Recovering/Resolving]
  - Coagulopathy [Recovering/Resolving]
  - Vomiting [Recovering/Resolving]
  - Prothrombin time prolonged [Recovering/Resolving]
